FAERS Safety Report 9848682 (Version 1)
Quarter: 2013Q4

REPORT INFORMATION
  Report Type: Spontaneous
  Country: US (occurrence: None)
  Receive Date: 20131224
  Receipt Date: 20131224
  Transmission Date: 20140711
  Serious: Yes (Other)
  Sender: FDA-Public Use
  Company Number: PHEH2013US014054

PATIENT
  Age: 51 Year
  Sex: Female
  Weight: 66 kg

DRUGS (1)
  1. FEMARA [Suspect]
     Dosage: UNK UKN , UNK

REACTIONS (3)
  - Dizziness [None]
  - Blood cholesterol increased [None]
  - Fatigue [None]
